FAERS Safety Report 5238852-8 (Version None)
Quarter: 2007Q1

REPORT INFORMATION
  Report Type: 
  Country: None (occurrence: None)
  Receive Date: 20070215
  Receipt Date: 20070205
  Transmission Date: 20070707
  Serious: Yes (Other)
  Sender: FDA-Public Use
  Company Number: US-PFIZER INC-2007009763

PATIENT
  Sex: Male
  Weight: 90.7 kg

DRUGS (3)
  1. XANAX [Suspect]
     Indication: PANIC ATTACK
  2. ABILIFY [Concomitant]
  3. AMBIEN [Concomitant]

REACTIONS (6)
  - AGITATION [None]
  - ANGER [None]
  - DRUG TOXICITY [None]
  - HOSTILITY [None]
  - MOOD ALTERED [None]
  - PERSONALITY CHANGE [None]
